FAERS Safety Report 10029293 (Version 3)
Quarter: 2014Q2

REPORT INFORMATION
  Report Type: Spontaneous
  Country: BE (occurrence: BE)
  Receive Date: 20140321
  Receipt Date: 20140402
  Transmission Date: 20141212
  Serious: Yes (Hospitalization, Other)
  Sender: FDA-Public Use
  Company Number: PHHY2014BE025300

PATIENT
  Age: 55 Year
  Sex: Female

DRUGS (13)
  1. ACLASTA [Suspect]
     Indication: OSTEOPOROSIS POSTMENOPAUSAL
     Dosage: 5 MG, ONCE
     Route: 042
     Dates: start: 20140220
  2. ADENURIC [Concomitant]
     Indication: HYPERURICAEMIA
     Dosage: 120 MG, QD
     Route: 048
  3. ASAFLOW [Concomitant]
     Dosage: 80 MG, QD
     Route: 048
  4. LASIX [Concomitant]
     Dosage: 40 MG, PRN
     Route: 048
  5. OLMETEC [Concomitant]
     Dosage: 10 MG, QD
     Route: 048
  6. CALCIUM CARBONATE [Concomitant]
     Indication: HYPOCALCAEMIA
     Dosage: 1 G, QD
     Route: 048
  7. CALCIUM CARBONATE [Concomitant]
     Dosage: 2 G, QD
     Route: 048
  8. OMEPRAZOLE [Concomitant]
     Dosage: 20 MG, QD
     Route: 048
  9. D-CURE [Concomitant]
     Dosage: 100 U, QMO
     Route: 048
  10. SELOZOK [Concomitant]
     Dosage: 95 MG, UNK
     Route: 048
  11. SELOZOK [Concomitant]
     Dosage: 100 MG, QD
     Route: 048
  12. HUMIRA [Concomitant]
     Indication: ANKYLOSING SPONDYLITIS
     Dosage: 40 MG, BIW
     Route: 058
  13. URSOFALK [Concomitant]
     Dosage: 250 MG, BID
     Route: 048

REACTIONS (16)
  - Hyperparathyroidism [Recovered/Resolved]
  - Hypovitaminosis [Recovered/Resolved]
  - Hypocalcaemia [Recovered/Resolved]
  - Musculoskeletal chest pain [Recovered/Resolved]
  - Influenza like illness [Recovered/Resolved]
  - Arthralgia [Unknown]
  - Myalgia [Unknown]
  - Body temperature increased [Unknown]
  - Haematuria [Unknown]
  - Renal impairment [Unknown]
  - Urinary tract infection [Recovered/Resolved]
  - Urine flow decreased [Unknown]
  - Chromaturia [Unknown]
  - Movement disorder [Unknown]
  - Nausea [Unknown]
  - Pyuria [Unknown]
